FAERS Safety Report 10626230 (Version 1)
Quarter: 2014Q4

REPORT INFORMATION
  Report Type: Spontaneous
  Country: US (occurrence: US)
  Receive Date: 20141204
  Receipt Date: 20141204
  Transmission Date: 20150529
  Serious: Yes (Hospitalization, Other)
  Sender: FDA-Public Use
  Company Number: US-ACTAVIS-2014-25911

PATIENT
  Age: 27 Year
  Sex: Female

DRUGS (1)
  1. METRONIDAZOLE (WATSON LABORATORIES) [Suspect]
     Active Substance: METRONIDAZOLE
     Indication: BACTERIAL VAGINOSIS
     Dosage: 500 MG, BID
     Route: 065

REACTIONS (1)
  - Acute psychosis [Recovered/Resolved]
